FAERS Safety Report 7185267-1 (Version None)
Quarter: 2010Q4

REPORT INFORMATION
  Report Type: 
  Country: None (occurrence: None)
  Receive Date: 20101222
  Receipt Date: 20100601
  Transmission Date: 20110411
  Serious: No
  Sender: FDA-Public Use
  Company Number: US-AMGEN-KDL415902

PATIENT

DRUGS (1)
  1. ENBREL [Suspect]
     Indication: PSORIASIS
     Dosage: 50 MG, QWK
     Route: 058

REACTIONS (7)
  - CHEST DISCOMFORT [None]
  - ERYTHEMA [None]
  - IMPAIRED HEALING [None]
  - INFLAMMATION [None]
  - MACULE [None]
  - OROPHARYNGEAL PAIN [None]
  - SINUS CONGESTION [None]
